FAERS Safety Report 6442109-7 (Version None)
Quarter: 2009Q4

REPORT INFORMATION
  Report Type: 
  Country: None (occurrence: None)
  Receive Date: 20091116
  Receipt Date: 20091103
  Transmission Date: 20100525
  Serious: Yes (Hospitalization, Other)
  Sender: FDA-Public Use
  Company Number: PHHY2009GB41813

PATIENT
  Sex: Female

DRUGS (11)
  1. CLOZARIL [Suspect]
     Indication: SCHIZOPHRENIA
     Dosage: UNK
     Dates: start: 20090629, end: 20090924
  2. ASPIRIN [Concomitant]
  3. SIMAVASTATIN [Concomitant]
     Dosage: 40 MG
  4. LEVOTHYROXINE SODIUM [Concomitant]
     Dosage: 75 MCG
  5. VENLAFAXINE [Concomitant]
     Dosage: 225 MG, QD
  6. NULYTELY [Concomitant]
  7. FLUTICASONE PROPIONATE W/SALMETEROL [Concomitant]
  8. IPRATROPIUM BROMIDE [Concomitant]
  9. LATANOPROST [Concomitant]
  10. EPADERM [Concomitant]
  11. CLOBETASONE [Concomitant]
     Route: 061

REACTIONS (9)
  - AGRANULOCYTOSIS [None]
  - DIFFERENTIAL WHITE BLOOD CELL COUNT ABNORMAL [None]
  - FALL [None]
  - HYPOPHAGIA [None]
  - LEUKOPENIA [None]
  - NEUTROPENIA [None]
  - NEUTROPHIL COUNT INCREASED [None]
  - TREMOR [None]
  - WHITE BLOOD CELL COUNT INCREASED [None]
